FAERS Safety Report 9493252 (Version 1)
Quarter: 2013Q3

REPORT INFORMATION
  Report Type: Report from Study
  Country: CA (occurrence: CA)
  Receive Date: 20130902
  Receipt Date: 20130902
  Transmission Date: 20140515
  Serious: Yes (Death)
  Sender: FDA-Public Use
  Company Number: PHHY2013CA094919

PATIENT
  Age: 54 Year
  Sex: Female

DRUGS (1)
  1. SANDOSTATIN [Suspect]
     Indication: OVARIAN CANCER
     Dosage: 100 UG, TID
     Route: 058
     Dates: start: 20130701

REACTIONS (1)
  - Death [Fatal]
